FAERS Safety Report 6449235-7 (Version None)
Quarter: 2009Q4

REPORT INFORMATION
  Report Type: 
  Country: None (occurrence: None)
  Receive Date: 20091120
  Receipt Date: 20091109
  Transmission Date: 20100525
  Serious: Yes (Life-Threatening)
  Sender: FDA-Public Use
  Company Number: US-BRISTOL-MYERS SQUIBB COMPANY-14851158

PATIENT
  Sex: Female

DRUGS (1)
  1. ETOPOPHOS PRESERVATIVE FREE [Suspect]

REACTIONS (1)
  - CARDIAC ARREST [None]
